FAERS Safety Report 8396942-5 (Version None)
Quarter: 2012Q2

REPORT INFORMATION
  Report Type: 
  Country: None (occurrence: None)
  Receive Date: 20120530
  Receipt Date: 20120524
  Transmission Date: 20120825
  Serious: No
  Sender: FDA-Public Use
  Company Number: US-PFIZER INC-2012126395

PATIENT
  Sex: Female
  Weight: 83 kg

DRUGS (4)
  1. BACLOFEN [Concomitant]
     Dosage: UNK
  2. LYRICA [Suspect]
     Indication: FIBROMYALGIA
     Dosage: 150 MG, 2X/DAY
     Route: 048
     Dates: start: 20111101, end: 20120517
  3. TRAMADOL [Concomitant]
     Dosage: UNK
  4. NAPROXEN [Concomitant]
     Dosage: UNK

REACTIONS (5)
  - DYSSTASIA [None]
  - ARTHRALGIA [None]
  - HYPERTENSION [None]
  - PAIN [None]
  - GAIT DISTURBANCE [None]
